FAERS Safety Report 25120177 (Version 1)
Quarter: 2025Q1

REPORT INFORMATION
  Report Type: Spontaneous
  Country: US (occurrence: US)
  Receive Date: 20250325
  Receipt Date: 20250325
  Transmission Date: 20250408
  Serious: No
  Sender: BAYER HEALTHCARE LLC
  Company Number: US-BAYER-2025A040274

PATIENT
  Age: 80 Year
  Sex: Female

DRUGS (4)
  1. CLARITIN [Suspect]
     Active Substance: LORATADINE
     Indication: Nasal congestion
     Dosage: 1 DF, QD
     Route: 048
  2. CLARITIN [Suspect]
     Active Substance: LORATADINE
     Indication: Hypersensitivity
  3. CLARITIN [Suspect]
     Active Substance: LORATADINE
     Indication: Nasopharyngitis
  4. CLARITIN [Suspect]
     Active Substance: LORATADINE
     Indication: Lacrimation increased

REACTIONS (2)
  - Product use in unapproved indication [Not Recovered/Not Resolved]
  - Drug ineffective [None]
